FAERS Safety Report 6835890 (Version 2)
Quarter: 2012Q4

REPORT INFORMATION
  Report Type: 
  Country: AR (occurrence: AR)
  Receive Date: 20081208
  Receipt Date: 20121127
  Transmission Date: 20130627
  Serious: Yes (Other)
  Sender: FDA-Public Use
  Company Number: PHHY2008AR29783

PATIENT
  Sex: Female

DRUGS (3)
  1. DIOVAN [Suspect]
     Indication: HYPERTENSION
     Dosage: 80 mg, QD
     Route: 048
     Dates: start: 1992, end: 2008
  2. DIOVAN [Suspect]
     Dosage: 160 mg, UNK
  3. DIOXAFLEX B12 [Concomitant]
     Indication: ANTIINFLAMMATORY THERAPY
     Dosage: UNK UKN, UNK

REACTIONS (1)
  - Blood pressure increased [Recovering/Resolving]
